FAERS Safety Report 6209496-6 (Version None)
Quarter: 2009Q2

REPORT INFORMATION
  Report Type: 
  Country: None (occurrence: None)
  Receive Date: 20090601
  Receipt Date: 20090520
  Transmission Date: 20091009
  Serious: Yes (Hospitalization)
  Sender: FDA-Public Use
  Company Number: PHHY2009JP19431

PATIENT
  Sex: Female
  Weight: 50 kg

DRUGS (2)
  1. DIOVAN T30230+TAB+HY [Suspect]
     Dosage: ONCE DAILY
     Route: 048
     Dates: start: 20071029, end: 20071101
  2. BEPRICOR [Concomitant]
     Dosage: 200 MG
     Route: 048
     Dates: start: 20071029, end: 20071101

REACTIONS (1)
  - ATRIAL FIBRILLATION [None]
